FAERS Safety Report 11183033 (Version 2)
Quarter: 2015Q2

REPORT INFORMATION
  Report Type: Spontaneous
  Country: JP (occurrence: JP)
  Receive Date: 20150611
  Receipt Date: 20150622
  Transmission Date: 20150821
  Serious: Yes (Hospitalization)
  Sender: FDA-Public Use
  Company Number: JP-BAXTER-2015BAX030827

PATIENT
  Age: 88 Year
  Sex: Female
  Weight: 48 kg

DRUGS (7)
  1. SUPRANE [Suspect]
     Active Substance: DESFLURANE
     Indication: GENERAL ANAESTHESIA
     Route: 055
  2. LEVOBUPIVACAINE [Concomitant]
     Active Substance: LEVOBUPIVACAINE
     Indication: ANALGESIC THERAPY
     Route: 065
  3. REMIFENTANIL [Concomitant]
     Active Substance: REMIFENTANIL
     Indication: ANALGESIC THERAPY
     Dosage: 0.1 TO 0.3 MICROGRAM PER KG PER MIN
     Route: 041
  4. HEPARIN [Concomitant]
     Active Substance: HEPARIN SODIUM
     Indication: DEEP VEIN THROMBOSIS
     Route: 042
  5. LEVOBUPIVACAINE [Concomitant]
     Active Substance: LEVOBUPIVACAINE
     Indication: NERVE BLOCK
  6. FENTANYL. [Concomitant]
     Active Substance: FENTANYL
     Indication: ANALGESIC THERAPY
     Route: 065
  7. SUGAMMADEX [Concomitant]
     Active Substance: SUGAMMADEX
     Indication: PRODUCT USED FOR UNKNOWN INDICATION
     Route: 065

REACTIONS (1)
  - Pneumothorax [Recovered/Resolved]
